FAERS Safety Report 7907926-2 (Version None)
Quarter: 2011Q4

REPORT INFORMATION
  Report Type: 
  Country: None (occurrence: None)
  Receive Date: 20111110
  Receipt Date: 20111108
  Transmission Date: 20120403
  Serious: Yes (Hospitalization)
  Sender: FDA-Public Use
  Company Number: US-ROXANE LABORATORIES, INC.-2011-RO-01610RO

PATIENT
  Sex: Male

DRUGS (2)
  1. HECTOROL [Suspect]
  2. CALCIUM ACETATE [Suspect]
     Indication: CALCIUM PHOSPHATE PRODUCT
     Dates: start: 20110201, end: 20110201

REACTIONS (2)
  - HYPERCALCAEMIA [None]
  - CONFUSIONAL STATE [None]
